FAERS Safety Report 8368376-0 (Version None)
Quarter: 2012Q2

REPORT INFORMATION
  Report Type: 
  Country: None (occurrence: None)
  Receive Date: 20120517
  Receipt Date: 20120507
  Transmission Date: 20120825
  Serious: Yes (Hospitalization)
  Sender: FDA-Public Use
  Company Number: US-ELI_LILLY_AND_COMPANY-US201203008432

PATIENT
  Sex: Female

DRUGS (8)
  1. TEMAZEPAM [Concomitant]
     Dosage: 30 MG, PRN
     Route: 065
  2. DILTIAZEM HCL [Concomitant]
     Dosage: 240 MG, QD
     Route: 065
  3. FORTEO [Suspect]
     Indication: OSTEOPOROSIS
     Dosage: 20 UG, QD
     Route: 065
     Dates: start: 20120309
  4. CRESTOR [Concomitant]
     Dosage: 5 MG, QOD
     Route: 065
  5. FORTEO [Suspect]
     Dosage: 20 UG, QD
     Route: 065
     Dates: start: 20120309
  6. MULTAQ [Concomitant]
     Dosage: 400 MG, QD
     Route: 065
  7. LORAZEPAM [Concomitant]
     Dosage: 0.5 MG, PRN
     Route: 065
  8. CALCIUM +D3 [Concomitant]
     Dosage: UNK, QD
     Route: 065

REACTIONS (5)
  - ANXIETY [None]
  - PAIN [None]
  - MEMORY IMPAIRMENT [None]
  - CARDIAC PACEMAKER INSERTION [None]
  - BLOOD PRESSURE ABNORMAL [None]
